FAERS Safety Report 4385674-6 (Version None)
Quarter: 2004Q2

REPORT INFORMATION
  Report Type: 
  Country: None (occurrence: None)
  Receive Date: 20040628
  Receipt Date: 20040507
  Transmission Date: 20050107
  Serious: Yes (Hospitalization, Disabling)
  Sender: FDA-Public Use
  Company Number: BE-BRISTOL-MYERS SQUIBB COMPANY-12585543

PATIENT
  Age: 65 Year
  Sex: Male

DRUGS (1)
  1. MITOMYCIN-C BULK POWDER [Suspect]
     Indication: URINARY BLADDER POLYP
     Route: 043
     Dates: start: 20040123, end: 20040304

REACTIONS (2)
  - CYSTITIS HAEMORRHAGIC [None]
  - URETERIC STENOSIS [None]
